FAERS Safety Report 13570560 (Version 2)
Quarter: 2017Q3

REPORT INFORMATION
  Report Type: Report from Study
  Country: None (occurrence: BR)
  Receive Date: 20170522
  Receipt Date: 20170821
  Transmission Date: 20171127
  Serious: No
  Sender: FDA-Public Use
  Company Number: BR-ABBVIE-16K-020-1647616-00

PATIENT
  Age: 72 Year
  Sex: Female
  Weight: 64 kg

DRUGS (16)
  1. FUROSEMIDE. [Suspect]
     Active Substance: FUROSEMIDE
     Indication: PRODUCT USED FOR UNKNOWN INDICATION
     Route: 065
  2. SALINE [Concomitant]
     Active Substance: SODIUM CHLORIDE
     Indication: PRODUCT USED FOR UNKNOWN INDICATION
  3. CHLOROQUINE DIPHOSPHATE [Concomitant]
     Active Substance: CHLOROQUINE PHOSPHATE
     Indication: ARTHRITIS
     Route: 048
     Dates: start: 2006
  4. SIMVASTATIN. [Concomitant]
     Active Substance: SIMVASTATIN
     Indication: BLOOD PRESSURE ABNORMAL
     Route: 048
  5. FAMOTIDINE. [Concomitant]
     Active Substance: FAMOTIDINE
     Indication: ARTHRITIS
     Route: 048
     Dates: start: 2006
  6. NIMESULIDE [Concomitant]
     Active Substance: NIMESULIDE
     Indication: ARTHRITIS
     Route: 048
     Dates: start: 2006
  7. DIPHOSPHATE [Concomitant]
     Indication: ARTHRITIS
     Route: 048
     Dates: start: 2006
  8. GINKGO BILOBA [Concomitant]
     Active Substance: GINKGO
     Indication: CARDIOVASCULAR DISORDER
     Dates: start: 2003
  9. PREDNISONE. [Concomitant]
     Active Substance: PREDNISONE
     Indication: ARTHRITIS
     Route: 048
     Dates: start: 2006
  10. ATENOLOL. [Concomitant]
     Active Substance: ATENOLOL
     Indication: BLOOD PRESSURE ABNORMAL
     Route: 048
  11. LOSARTAN. [Concomitant]
     Active Substance: LOSARTAN
     Indication: BLOOD PRESSURE ABNORMAL
     Route: 048
  12. DIOSMIN [Concomitant]
     Active Substance: DIOSMIN
     Indication: CARDIOVASCULAR DISORDER
     Route: 048
  13. HUMIRA [Suspect]
     Active Substance: ADALIMUMAB
     Indication: RHEUMATOID ARTHRITIS
     Route: 058
     Dates: start: 20060103
  14. HUMIRA [Suspect]
     Active Substance: ADALIMUMAB
     Route: 058
     Dates: start: 20160103
  15. HYDROCHLOROTHIAZIDE. [Concomitant]
     Active Substance: HYDROCHLOROTHIAZIDE
     Indication: BLOOD PRESSURE ABNORMAL
     Route: 048
  16. GINKGO BILOBA [Concomitant]
     Active Substance: GINKGO
     Indication: MENTAL DISORDER

REACTIONS (4)
  - Injection site erythema [Recovered/Resolved]
  - Hypotension [Unknown]
  - Injection site hypersensitivity [Recovered/Resolved]
  - Pollakiuria [Recovered/Resolved]

NARRATIVE: CASE EVENT DATE: 20160517
